FAERS Safety Report 6809539-2 (Version None)
Quarter: 2010Q2

REPORT INFORMATION
  Report Type: 
  Country: None (occurrence: None)
  Receive Date: 20100630
  Receipt Date: 20100617
  Transmission Date: 20101027
  Serious: Yes (Other)
  Sender: FDA-Public Use
  Company Number: PHBS2007IN02023

PATIENT
  Age: 29 Year
  Sex: Female

DRUGS (2)
  1. CARBAMAZEPINE [Suspect]
     Indication: CONVULSION
     Dosage: 600 MG/DAY
     Route: 065
  2. CARBAMAZEPINE [Suspect]
     Dosage: 1000 MG/DAY
     Route: 065

REACTIONS (14)
  - BLOOD LACTIC ACID INCREASED [None]
  - DRUG EXPOSURE DURING PREGNANCY [None]
  - HEART RATE INCREASED [None]
  - HYPOREFLEXIA [None]
  - HYPOTONIA [None]
  - MELAS SYNDROME [None]
  - METABOLIC ACIDOSIS [None]
  - MITOCHONDRIAL CYTOPATHY [None]
  - MYDRIASIS [None]
  - PREGNANCY TEST POSITIVE [None]
  - PROTEIN TOTAL INCREASED [None]
  - PUPILLARY REFLEX IMPAIRED [None]
  - SOMNOLENCE [None]
  - STATUS EPILEPTICUS [None]
